FAERS Safety Report 6635758-4 (Version None)
Quarter: 2010Q1

REPORT INFORMATION
  Report Type: 
  Country: None (occurrence: None)
  Receive Date: 20100309
  Receipt Date: 20100123
  Transmission Date: 20100710
  Serious: Yes (Hospitalization)
  Sender: FDA-Public Use
  Company Number: 2010EU000846

PATIENT
  Age: 64 Year
  Sex: Female

DRUGS (2)
  1. TACROLIMUS [Suspect]
     Indication: LIVER TRANSPLANT
     Dosage: ORAL
     Route: 048
     Dates: start: 20081114
  2. PREDNISOLONE [Suspect]
     Indication: LIVER TRANSPLANT
     Dosage: ORAL

REACTIONS (2)
  - ALCOHOLISM [None]
  - HEPATIC ENCEPHALOPATHY [None]
